FAERS Safety Report 18157920 (Version 1)
Quarter: 2020Q3

REPORT INFORMATION
  Report Type: Spontaneous
  Country: US (occurrence: US)
  Receive Date: 20200817
  Receipt Date: 20200817
  Transmission Date: 20201103
  Serious: No
  Sender: FDA-Public Use
  Company Number: US-MYLANLABS-2020M1070929

PATIENT
  Age: 75 Year
  Sex: Male
  Weight: 88 kg

DRUGS (1)
  1. LIDOCAINE PATCH [Suspect]
     Active Substance: LIDOCAINE
     Indication: BACK PAIN
     Dosage: DAILY FOR 12 HOURS
     Route: 003
     Dates: start: 20200801, end: 20200803

REACTIONS (3)
  - Product adhesion issue [Not Recovered/Not Resolved]
  - Off label use [Not Recovered/Not Resolved]
  - Product quality issue [Not Recovered/Not Resolved]

NARRATIVE: CASE EVENT DATE: 20200801
